FAERS Safety Report 24721882 (Version 1)
Quarter: 2024Q4

REPORT INFORMATION
  Report Type: Report from Study
  Country: TH (occurrence: TH)
  Receive Date: 20241211
  Receipt Date: 20241211
  Transmission Date: 20250115
  Serious: Yes (Death, Hospitalization, Other)
  Sender: BAYER HEALTHCARE PHARMACEUTICALS INC.
  Company Number: TH-BAYER-2024A174312

PATIENT
  Age: 71 Year
  Sex: Male

DRUGS (1)
  1. STIVARGA [Suspect]
     Active Substance: REGORAFENIB MONOHYDRATE
     Indication: Hepatocellular carcinoma
     Dosage: 160 MG, QD
     Route: 048
     Dates: start: 20240822, end: 20241017

REACTIONS (4)
  - Death [Fatal]
  - Blood electrolytes decreased [None]
  - Hepatocellular carcinoma [None]
  - Feeding disorder [None]

NARRATIVE: CASE EVENT DATE: 20241206
